FAERS Safety Report 7885242-5 (Version None)
Quarter: 2011Q4

REPORT INFORMATION
  Report Type: 
  Country: None (occurrence: None)
  Receive Date: 20111102
  Receipt Date: 20111028
  Transmission Date: 20120403
  Serious: Yes (Life-Threatening, Hospitalization)
  Sender: FDA-Public Use
  Company Number: JP-BAYER-2011-055661

PATIENT
  Age: 76 Year
  Sex: Male
  Weight: 54 kg

DRUGS (14)
  1. ADALAT [Suspect]
     Indication: HYPERTENSION
     Dosage: DAILY DOSE 40 MG
     Route: 048
     Dates: start: 20060101, end: 20100206
  2. CIPRALAN [Interacting]
     Dosage: 200 MG, UNK
     Route: 048
     Dates: start: 20100208
  3. OXYGEN [Concomitant]
     Indication: PNEUMONIA
     Dosage: UNK
     Route: 055
     Dates: start: 20100212
  4. GARENOXACIN MESYLATE [Concomitant]
     Dosage: DAILY DOSE 200 MG
     Route: 048
  5. DILTIAZEM HCL [Interacting]
     Dosage: 200 MG
     Route: 048
     Dates: start: 20100208, end: 20100213
  6. GASMOTIN [Concomitant]
     Dosage: DAILY DOSE 15 MG
     Route: 048
  7. DAIO-KANZO-TO [Concomitant]
     Dosage: DAILY DOSE 7.5 G
     Route: 048
  8. FLECAINIDE ACETATE [Interacting]
     Dosage: 200 MG, UNK
     Route: 048
     Dates: end: 20100206
  9. FLECAINIDE ACETATE [Interacting]
     Dosage: UNK
     Route: 048
     Dates: start: 20100208, end: 20100213
  10. OMEPRAZOLE [Concomitant]
     Dosage: DAILY DOSE 10 MG
     Route: 048
  11. ASPIRIN [Concomitant]
     Dosage: DAILY DOSE 100 MG
     Route: 048
  12. ALBUTEROL SULFATE [Concomitant]
     Indication: ASTHMA
     Dosage: UNK
     Route: 055
     Dates: start: 20100211
  13. ADALAT [Suspect]
     Dosage: 40 MG, UNK
     Route: 048
     Dates: start: 20100208, end: 20100213
  14. DILTIAZEM HCL [Interacting]
     Dosage: 200 MG, UNK
     Route: 048
     Dates: start: 20100206

REACTIONS (7)
  - FATIGUE [None]
  - RENAL FAILURE CHRONIC [None]
  - CARDIAC ARREST [None]
  - DYSPNOEA [None]
  - BRADYCARDIA [None]
  - HYPOTENSION [None]
  - LOSS OF CONSCIOUSNESS [None]
